FAERS Safety Report 5466668-6 (Version None)
Quarter: 2007Q3

REPORT INFORMATION
  Report Type: 
  Country: None (occurrence: None)
  Receive Date: 20070921
  Receipt Date: 20070921
  Transmission Date: 20080115
  Serious: Yes (Other)
  Sender: FDA-Public Use
  Company Number: None

PATIENT
  Age: 69 Year
  Sex: Male
  Weight: 94 kg

DRUGS (1)
  1. VANCOMYCIN [Suspect]
     Indication: ANTIBIOTIC PROPHYLAXIS
     Dosage: 2000 MG DAILY IV
     Route: 042
     Dates: start: 20070914, end: 20070915

REACTIONS (4)
  - BRADYCARDIA [None]
  - CARDIAC DISORDER [None]
  - HYPERTENSION [None]
  - INFUSION RELATED REACTION [None]
